FAERS Safety Report 19617884 (Version 1)
Quarter: 2021Q3

REPORT INFORMATION
  Report Type: Spontaneous
  Country: JP (occurrence: JP)
  Receive Date: 20210727
  Receipt Date: 20210727
  Transmission Date: 20211014
  Serious: Yes (Death, Hospitalization, Other)
  Sender: FDA-Public Use
  Company Number: JP-BRISTOL-MYERS SQUIBB COMPANY-BMS-2021-072820

PATIENT
  Age: 9 Decade
  Sex: Male

DRUGS (1)
  1. ELIQUIS [Suspect]
     Active Substance: APIXABAN
     Indication: CEREBROVASCULAR ACCIDENT PROPHYLAXIS
     Dosage: UNK
     Route: 048

REACTIONS (6)
  - Retroperitoneal haematoma [Unknown]
  - Anaemia [Unknown]
  - Haemorrhage intracranial [Fatal]
  - Haematuria [Unknown]
  - Activated partial thromboplastin time prolonged [Recovering/Resolving]
  - International normalised ratio increased [Recovering/Resolving]
